FAERS Safety Report 8996804 (Version 2)
Quarter: 2013Q1

REPORT INFORMATION
  Report Type: Spontaneous
  Country: DE (occurrence: DE)
  Receive Date: 20130104
  Receipt Date: 20130327
  Transmission Date: 20140127
  Serious: Yes (Other)
  Sender: FDA-Public Use
  Company Number: DE-ELI_LILLY_AND_COMPANY-DE201110004733

PATIENT
  Age: 11 Year
  Sex: Male
  Weight: 37.1 kg

DRUGS (4)
  1. STRATTERA [Suspect]
     Indication: ATTENTION DEFICIT/HYPERACTIVITY DISORDER
     Dosage: 40 MG, QD
     Route: 048
     Dates: start: 2008, end: 200905
  2. STRATTERA [Suspect]
     Dosage: 25 MG, QD
     Dates: start: 200905, end: 201105
  3. STRATTERA [Suspect]
     Dosage: UNK
     Dates: start: 201105
  4. TESTOSTERONE [Concomitant]
     Dosage: 1 DF, PRN

REACTIONS (2)
  - Haemolytic anaemia [Recovered/Resolved]
  - Developmental delay [Not Recovered/Not Resolved]
